FAERS Safety Report 16639033 (Version 1)
Quarter: 2019Q3

REPORT INFORMATION
  Report Type: Spontaneous
  Country: GB (occurrence: GB)
  Receive Date: 20190726
  Receipt Date: 20190726
  Transmission Date: 20191004
  Serious: Yes (Hospitalization)
  Sender: FDA-Public Use
  Company Number: GB-TEVA-2019-GB-1083805

PATIENT
  Age: 91 Year
  Sex: Male

DRUGS (11)
  1. CASSIA [Concomitant]
     Dosage: AT NIGHT
     Route: 048
  2. BENZALKONIUM CHLORIDE. [Concomitant]
     Active Substance: BENZALKONIUM CHLORIDE
     Dosage: DIMETICONE 22% / BENZALKONIUM CHLORIDE 0.1% CREAM
     Route: 061
  3. PARAFFIN, LIGHT LIQUID [Concomitant]
     Dosage: APPLY THREE TO FOUR TIMES A DAY. LIQUID PARAFFIN LIGHT 37.8% / ISOPROPYL MYRISTATE 13% BATH ADDITIVE
     Route: 061
  4. FERROUS SULFATE. [Concomitant]
     Active Substance: FERROUS SULFATE
     Route: 048
  5. PARACETAMOL [Concomitant]
     Active Substance: ACETAMINOPHEN
     Dosage: 500MG-1G FOUR TIMES A DAY AS NECESSARY
     Route: 048
  6. DIMETICONE [Concomitant]
     Active Substance: DIMETHICONE
     Dosage: DIMETICONE 22% / BENZALKONIUM CHLORIDE 0.1% CREAM
     Route: 061
  7. ALENDRONIC ACID [Concomitant]
     Active Substance: ALENDRONIC ACID
     Route: 048
  8. ISOPROPYL MYRISTATE [Concomitant]
     Active Substance: ISOPROPYL MYRISTATE
     Dosage: APPLY THREE TO FOUR TIMES A DAY. LIQUID PARAFFIN LIGHT 37.8% / ISOPROPYL MYRISTATE 13% BATH ADDITIVE
     Route: 061
  9. MIDODRINE [Concomitant]
     Active Substance: MIDODRINE
     Dosage: 5MG TDS
     Route: 048
  10. WARFARIN [Suspect]
     Active Substance: WARFARIN
     Dosage: 1/2MG DEPENDING ON THROMBIN TIME
     Route: 048
  11. CALCIUM AND COLECALCIFEROL [Concomitant]
     Dosage: COLECALCIFEROL 1,000UNIT / CALCIUM CARBONATE 2.5G CHEWABLE TABLETS
     Route: 048

REACTIONS (3)
  - Haematuria [Recovering/Resolving]
  - International normalised ratio increased [Unknown]
  - Haematemesis [Recovered/Resolved]

NARRATIVE: CASE EVENT DATE: 20190529
